FAERS Safety Report 13376960 (Version 1)
Quarter: 2017Q1

REPORT INFORMATION
  Report Type: Spontaneous
  Country: US (occurrence: US)
  Receive Date: 20170328
  Receipt Date: 20170328
  Transmission Date: 20170429
  Serious: No
  Sender: FDA-Public Use
  Company Number: None

PATIENT
  Age: 73 Year
  Sex: Male
  Weight: 101 kg

DRUGS (3)
  1. LENALIDOMIDE (CC-5013) [Suspect]
     Active Substance: LENALIDOMIDE
     Dates: end: 20170310
  2. VELCADE [Suspect]
     Active Substance: BORTEZOMIB
     Dates: end: 20170303
  3. DEXAMETHASONE. [Suspect]
     Active Substance: DEXAMETHASONE
     Dates: end: 20170310

REACTIONS (4)
  - Back pain [None]
  - Atelectasis [None]
  - Mobility decreased [None]
  - Lung infiltration [None]

NARRATIVE: CASE EVENT DATE: 20170316
